FAERS Safety Report 26022718 (Version 1)
Quarter: 2025Q4

REPORT INFORMATION
  Report Type: Other
  Country: EU (occurrence: EU)
  Receive Date: 20251110
  Receipt Date: 20251110
  Transmission Date: 20260117
  Serious: Yes (Other)
  Sender: MILLICENT HOLDINGS
  Company Number: EU-Millicent Holdings Ltd.-MILL20250316

PATIENT
  Sex: Female

DRUGS (2)
  1. ESTRADIOL [Suspect]
     Active Substance: ESTRADIOL
     Indication: Transgender hormonal therapy
     Dosage: 2 MG DAILY
     Route: 065
  2. CYPROTERONE ACETATE [Suspect]
     Active Substance: CYPROTERONE ACETATE
     Indication: Transgender hormonal therapy
     Dosage: 100 MG DAILY
     Route: 065

REACTIONS (1)
  - Meningioma [Unknown]
